FAERS Safety Report 8045471-7 (Version None)
Quarter: 2012Q1

REPORT INFORMATION
  Report Type: 
  Country: None (occurrence: None)
  Receive Date: 20120113
  Receipt Date: 20120112
  Transmission Date: 20120608
  Serious: Yes (Life-Threatening, Hospitalization)
  Sender: FDA-Public Use
  Company Number: DK-BAYER-2011-114024

PATIENT
  Age: 21 Year
  Sex: Female

DRUGS (8)
  1. YASMIN [Suspect]
  2. ALNOK [Concomitant]
  3. YASMIN [Suspect]
     Dosage: UNK
     Route: 048
     Dates: end: 20111022
  4. SULFASALAZINE [Concomitant]
     Indication: SCLERODERMA
     Dosage: 1000 MG
  5. ESOMEPRAZOLE SODIUM [Concomitant]
     Indication: DYSPEPSIA
     Dosage: 40 MG
  6. IBUPROFEN [Concomitant]
     Indication: PAIN
  7. ACETAMINOPHEN [Concomitant]
     Indication: PAIN
  8. PREDNISOLONE [Concomitant]
     Indication: SCLERODERMA

REACTIONS (2)
  - CEREBRAL THROMBOSIS [None]
  - COMA [None]
